FAERS Safety Report 7806790-X (Version None)
Quarter: 2011Q4

REPORT INFORMATION
  Report Type: 
  Country: None (occurrence: None)
  Receive Date: 20111011
  Receipt Date: 20111009
  Transmission Date: 20120403
  Serious: Yes (Death, Other)
  Sender: FDA-Public Use
  Company Number: PHHY2011MX89069

PATIENT
  Sex: Female

DRUGS (1)
  1. STALEVO 100 [Suspect]
     Indication: PARKINSON'S DISEASE
     Dosage: 2 DF, (LEVODOPA 200 MG/CARBIDOPA 100 MG/ENTACAPONE 25 MG)
     Route: 048

REACTIONS (2)
  - GASTROINTESTINAL DISORDER [None]
  - DEATH [None]
